FAERS Safety Report 9925180 (Version 1)
Quarter: 2014Q1

REPORT INFORMATION
  Report Type: Spontaneous
  Country: US (occurrence: None)
  Receive Date: 20140220
  Receipt Date: 20140220
  Transmission Date: 20141002
  Serious: Yes (Hospitalization)
  Sender: FDA-Public Use
  Company Number: CC0006

PATIENT
  Age: 70 Year
  Sex: Male
  Weight: 101.61 kg

DRUGS (1)
  1. TECHNETIUM TC-99M SESTAMIBI [Suspect]
     Indication: CARDIAC IMAGING PROCEDURE
     Route: 042
     Dates: start: 20140205

REACTIONS (5)
  - Cough [None]
  - Speech disorder [None]
  - Angioedema [None]
  - Acute respiratory failure [None]
  - Contrast media allergy [None]
